FAERS Safety Report 6259179-1 (Version None)
Quarter: 2009Q3

REPORT INFORMATION
  Report Type: 
  Country: None (occurrence: None)
  Receive Date: 20090707
  Receipt Date: 20090626
  Transmission Date: 20100115
  Serious: Yes (Disabling)
  Sender: FDA-Public Use
  Company Number: FR-AVENTIS-200912385FR

PATIENT
  Age: 30 Year
  Sex: Female

DRUGS (2)
  1. CLOMID [Suspect]
     Indication: OVULATION INDUCTION
     Route: 048
     Dates: start: 20080901, end: 20080901
  2. PROVAMES [Suspect]
     Indication: OVULATION INDUCTION
     Route: 048
     Dates: start: 20080901, end: 20080901

REACTIONS (2)
  - IRIDOCYCLITIS [None]
  - MYDRIASIS [None]
